FAERS Safety Report 21441335 (Version 1)
Quarter: 2022Q4

REPORT INFORMATION
  Report Type: Spontaneous
  Country: US (occurrence: US)
  Receive Date: 20221011
  Receipt Date: 20221011
  Transmission Date: 20230112
  Serious: Yes (Other)
  Sender: FDA-Public Use
  Company Number: US-TAKEDA-2022TUS070836

PATIENT
  Age: 73 Year
  Sex: Female

DRUGS (20)
  1. VELCADE [Suspect]
     Active Substance: BORTEZOMIB
     Indication: Plasma cell myeloma
     Dosage: UNK
     Route: 065
  2. DEXAMETHASONE [Suspect]
     Active Substance: DEXAMETHASONE
     Indication: Plasma cell myeloma
     Dosage: UNK
     Route: 065
  3. CYCLOPHOSPHAMIDE [Suspect]
     Active Substance: CYCLOPHOSPHAMIDE
     Indication: Plasma cell myeloma
     Dosage: UNK
     Route: 065
  4. LENALIDOMIDE [Suspect]
     Active Substance: LENALIDOMIDE
     Indication: Plasma cell myeloma
     Dosage: UNK
     Route: 065
  5. ZOVIRAX [Concomitant]
     Active Substance: ACYCLOVIR
     Dosage: 400 MILLIGRAM, Q12H
     Route: 048
  6. LIPITOR [Concomitant]
     Active Substance: ATORVASTATIN CALCIUM
     Dosage: 20 MILLIGRAM, QD
     Route: 048
  7. VITAMIN D3 [Concomitant]
     Active Substance: CHOLECALCIFEROL
     Dosage: UNK UNK, QD
     Route: 048
  8. FERROUS SULFATE [Concomitant]
     Active Substance: FERROUS SULFATE
     Dosage: UNK
     Route: 048
  9. ZOHYDRO [Concomitant]
     Active Substance: HYDROCODONE BITARTRATE
     Dosage: 10 MILLIGRAM, QD
     Route: 048
  10. SYNTHROID [Concomitant]
     Active Substance: LEVOTHYROXINE SODIUM
     Dosage: UNK UNK, QD
     Route: 048
  11. ATIVAN [Concomitant]
     Active Substance: LORAZEPAM
     Indication: Sleep disorder
     Dosage: 1 MILLIGRAM, BID
     Route: 048
  12. SINGULAIR [Concomitant]
     Active Substance: MONTELUKAST SODIUM
     Dosage: 10 MILLIGRAM, QD
     Route: 048
  13. PROTONIX [Concomitant]
     Active Substance: PANTOPRAZOLE SODIUM
     Dosage: 40 MILLIGRAM, QD
     Route: 048
  14. MIRALAX [Concomitant]
     Active Substance: POLYETHYLENE GLYCOL 3350
     Dosage: 17 GRAM, QD
     Route: 048
  15. REQUIP [Concomitant]
     Active Substance: ROPINIROLE HYDROCHLORIDE
     Dosage: 1 MILLIGRAM, QD
     Route: 048
  16. SENOKOT [Concomitant]
     Active Substance: SENNOSIDES
     Dosage: 8.6 MILLIGRAM
     Route: 048
  17. NASACORT [Concomitant]
     Active Substance: TRIAMCINOLONE ACETONIDE
     Dosage: UNK
     Route: 055
  18. AMBIEN [Concomitant]
     Active Substance: ZOLPIDEM TARTRATE
     Dosage: 5 MILLIGRAM, QD
     Route: 048
  19. ASTELIN [Concomitant]
     Active Substance: AZELASTINE HYDROCHLORIDE
     Dosage: 137 MICROGRAM
  20. ZOFRAN [Concomitant]
     Active Substance: ONDANSETRON HYDROCHLORIDE
     Indication: Nausea
     Dosage: 8 MILLIGRAM
     Route: 048

REACTIONS (1)
  - Plasma cell myeloma [Unknown]
